FAERS Safety Report 12124872 (Version 2)
Quarter: 2016Q1

REPORT INFORMATION
  Report Type: Spontaneous
  Country: US (occurrence: US)
  Receive Date: 20160229
  Receipt Date: 20160311
  Transmission Date: 20160526
  Serious: Yes (Other)
  Sender: FDA-Public Use
  Company Number: US-BEH-2016059189

PATIENT
  Age: 3 Year
  Sex: Female
  Weight: 13 kg

DRUGS (6)
  1. FLAGYL [Concomitant]
     Active Substance: METRONIDAZOLE\METRONIDAZOLE HYDROCHLORIDE
  2. LIDOCAINE. [Concomitant]
     Active Substance: LIDOCAINE
  3. HIZENTRA [Suspect]
     Active Substance: HUMAN IMMUNOGLOBULIN G
     Indication: CONGENITAL HYPOGAMMAGLOBULINAEMIA
     Route: 058
     Dates: start: 20151117
  4. HIZENTRA [Suspect]
     Active Substance: HUMAN IMMUNOGLOBULIN G
     Route: 058
     Dates: start: 20151117
  5. FLORASTOR [Concomitant]
     Active Substance: SACCHAROMYCES CEREVISIAE
  6. EPIPEN [Concomitant]
     Active Substance: EPINEPHRINE

REACTIONS (1)
  - Clostridium difficile infection [Unknown]

NARRATIVE: CASE EVENT DATE: 201602
